FAERS Safety Report 25355282 (Version 1)
Quarter: 2025Q2

REPORT INFORMATION
  Report Type: Spontaneous
  Country: US (occurrence: US)
  Receive Date: 20250524
  Receipt Date: 20250524
  Transmission Date: 20250717
  Serious: Yes (Hospitalization)
  Sender: MANKIND PHARMA
  Company Number: US-MankindUS-000391

PATIENT
  Age: 69 Year
  Sex: Female

DRUGS (31)
  1. FUROSEMIDE [Interacting]
     Active Substance: FUROSEMIDE
     Indication: Hypertension
  2. HYDRALAZINE [Interacting]
     Active Substance: HYDRALAZINE HYDROCHLORIDE
     Indication: Hypertension
     Dosage: TID
  3. HYDROCHLOROTHIAZIDE [Interacting]
     Active Substance: HYDROCHLOROTHIAZIDE
     Indication: Hypertension
  4. IRON SUCROSE [Interacting]
     Active Substance: IRON SUCROSE
     Indication: Iron deficiency anaemia
     Route: 042
  5. CARVEDILOL [Concomitant]
     Active Substance: CARVEDILOL
  6. INSULIN DEGLUDEC [Concomitant]
     Active Substance: INSULIN DEGLUDEC
  7. INSULIN LISPRO [Concomitant]
     Active Substance: INSULIN LISPRO
  8. BUMETANIDE [Concomitant]
     Active Substance: BUMETANIDE
  9. ISOSORBIDE MONONITRATE [Concomitant]
     Active Substance: ISOSORBIDE MONONITRATE
  10. PREGABALIN [Concomitant]
     Active Substance: PREGABALIN
  11. ATORVASTATIN [Concomitant]
     Active Substance: ATORVASTATIN
  12. TRAMADOL [Concomitant]
     Active Substance: TRAMADOL
  13. PANTOPRAZOLE [Concomitant]
     Active Substance: PANTOPRAZOLE
  14. ONDANSETRON [Concomitant]
     Active Substance: ONDANSETRON
  15. LINACLOTIDE [Concomitant]
     Active Substance: LINACLOTIDE
  16. BISOPROLOL FUMARATE\HYDROCHLOROTHIAZIDE [Concomitant]
     Active Substance: BISOPROLOL FUMARATE\HYDROCHLOROTHIAZIDE
  17. ENALAPRIL [Concomitant]
     Active Substance: ENALAPRIL
  18. PRAVASTATIN [Concomitant]
     Active Substance: PRAVASTATIN
  19. SERTRALINE [Concomitant]
     Active Substance: SERTRALINE HYDROCHLORIDE
  20. POTASSIUM [Concomitant]
     Active Substance: POTASSIUM
  21. DOCUSATE [Concomitant]
     Active Substance: DOCUSATE
  22. ROSUVASTATIN [Concomitant]
     Active Substance: ROSUVASTATIN
  23. AMLODIPINE [Concomitant]
     Active Substance: AMLODIPINE BESYLATE
  24. LACTULOSE [Concomitant]
     Active Substance: LACTULOSE
  25. ENALAPRIL [Concomitant]
     Active Substance: ENALAPRIL
  26. SERTRALINE [Concomitant]
     Active Substance: SERTRALINE HYDROCHLORIDE
  27. TRAMADOL [Concomitant]
     Active Substance: TRAMADOL
  28. INSULIN DEGLUDEC [Concomitant]
     Active Substance: INSULIN DEGLUDEC
  29. INSULIN LISPRO [Concomitant]
     Active Substance: INSULIN LISPRO
  30. BISOPROLOL FUMARATE\HYDROCHLOROTHIAZIDE [Concomitant]
     Active Substance: BISOPROLOL FUMARATE\HYDROCHLOROTHIAZIDE
  31. PREGABALIN [Concomitant]
     Active Substance: PREGABALIN

REACTIONS (2)
  - Gastrointestinal tract mucosal pigmentation [Recovered/Resolved]
  - Drug interaction [Unknown]
